FAERS Safety Report 11105214 (Version 3)
Quarter: 2015Q2

REPORT INFORMATION
  Report Type: Report from Study
  Country: AU (occurrence: AU)
  Receive Date: 20150511
  Receipt Date: 20150522
  Transmission Date: 20150821
  Serious: Yes (Other)
  Sender: FDA-Public Use
  Company Number: PHHY2015AU056547

PATIENT
  Age: 56 Year
  Sex: Male
  Weight: 69.8 kg

DRUGS (1)
  1. CLOZARIL [Suspect]
     Active Substance: CLOZAPINE
     Indication: SCHIZOPHRENIA
     Dosage: 550 MG, QD (NOCTE)
     Route: 048
     Dates: start: 19970122

REACTIONS (8)
  - Left ventricular dysfunction [Not Recovered/Not Resolved]
  - Mitral valve incompetence [Unknown]
  - Echocardiogram abnormal [Unknown]
  - Ejection fraction decreased [Unknown]
  - Pericardial effusion [Not Recovered/Not Resolved]
  - Tricuspid valve incompetence [Unknown]
  - Lung neoplasm malignant [Unknown]
  - Pulmonary valve incompetence [Unknown]

NARRATIVE: CASE EVENT DATE: 20150415
